FAERS Safety Report 12834907 (Version 4)
Quarter: 2016Q4

REPORT INFORMATION
  Report Type: Report from Study
  Country: None (occurrence: ES)
  Receive Date: 20161010
  Receipt Date: 20161107
  Transmission Date: 20170207
  Serious: Yes (Other)
  Sender: FDA-Public Use
  Company Number: ES-ABBVIE-16K-144-1669263-00

PATIENT
  Age: 72 Year
  Sex: Male

DRUGS (1)
  1. DUODOPA [Suspect]
     Active Substance: CARBIDOPA\LEVODOPA
     Indication: PARKINSON^S DISEASE
     Route: 050
     Dates: start: 201112

REACTIONS (10)
  - Stoma site irritation [Recovering/Resolving]
  - Device dislocation [Not Recovered/Not Resolved]
  - Stoma site infection [Unknown]
  - Stoma site erythema [Not Recovered/Not Resolved]
  - Wrong technique in product usage process [Unknown]
  - Stoma site discharge [Recovered/Resolved]
  - Stoma site reaction [Recovering/Resolving]
  - Stoma site discharge [Not Recovered/Not Resolved]
  - Impaired healing [Recovered/Resolved]
  - Wound secretion [Not Recovered/Not Resolved]

NARRATIVE: CASE EVENT DATE: 20160615
